FAERS Safety Report 20384599 (Version 2)
Quarter: 2022Q1

REPORT INFORMATION
  Report Type: Spontaneous
  Country: US (occurrence: US)
  Receive Date: 20220127
  Receipt Date: 20220210
  Transmission Date: 20220423
  Serious: No
  Sender: FDA-Public Use
  Company Number: US-PARATEK PHARMACEUTICALS, INC.-2022PTK00012

PATIENT
  Sex: Female
  Weight: 56.689 kg

DRUGS (14)
  1. NUZYRA [Suspect]
     Active Substance: OMADACYCLINE
     Indication: Nocardiosis
     Dosage: 300 MG, 1X/DAY
     Route: 048
     Dates: start: 202201
  2. NUZYRA [Suspect]
     Active Substance: OMADACYCLINE
     Dosage: UNK
     Dates: start: 2020, end: 2020
  3. QUETIAPINE [Concomitant]
     Active Substance: QUETIAPINE
     Dosage: 25 MG, 1X/DAY AT BEDTIME
  4. PANTOPRAZOLE [Concomitant]
     Active Substance: PANTOPRAZOLE
     Dosage: 40 MG (TITER), 1X/DAY
  5. LORAZEPAM [Concomitant]
     Active Substance: LORAZEPAM
     Dosage: 0.5 UNK AS NEEDED
  6. HYDROXYZINE HYDROCHLORIDE [Concomitant]
     Active Substance: HYDROXYZINE HYDROCHLORIDE
     Dosage: 50 MG, 1X/DAY AT BEDTIME
  7. CITALOPRAM [Concomitant]
     Active Substance: CITALOPRAM HYDROBROMIDE
     Dosage: 20 MG, 1X/DAY
  8. SUMATRIPTAN [Concomitant]
     Active Substance: SUMATRIPTAN
     Indication: Migraine
     Dosage: 100 MG, AS NEEDED
  9. ATENOLOL/HYDROCHLOROTHIAZIDE 50-25 MG [Concomitant]
     Dosage: 0.5 TABLETS, 1X/DAY
  10. UNSPECIFIED COMPOUNDED TESTOSTERONE AND ESTROGEN CREAM [Concomitant]
     Dosage: 2 DOSAGE FORM, 2X/DAY
     Route: 061
  11. TRAMADOL [Concomitant]
     Active Substance: TRAMADOL
     Dosage: 50 MG, AS NEEDED
  12. ZOFRAN [Concomitant]
     Active Substance: ONDANSETRON HYDROCHLORIDE
     Dosage: 4 MG, AS NEEDED
  13. IV POTASSIUM [Concomitant]
     Route: 042
  14. IV SODIUM [Concomitant]

REACTIONS (1)
  - Off label use [Not Recovered/Not Resolved]
